FAERS Safety Report 10754253 (Version 1)
Quarter: 2015Q1

REPORT INFORMATION
  Report Type: Spontaneous
  Country: HR (occurrence: HR)
  Receive Date: 20150202
  Receipt Date: 20150202
  Transmission Date: 20150721
  Serious: Yes (Hospitalization)
  Sender: FDA-Public Use
  Company Number: HR-JNJFOC-20150113484

PATIENT
  Age: 82 Year
  Sex: Female

DRUGS (5)
  1. CORDARONE [Concomitant]
     Active Substance: AMIODARONE HYDROCHLORIDE
     Indication: ANGINA PECTORIS
     Route: 048
  2. ATORVASTATIN CALCIUM. [Concomitant]
     Active Substance: ATORVASTATIN CALCIUM
     Indication: HYPERCHOLESTEROLAEMIA
     Route: 048
  3. XARELTO [Suspect]
     Active Substance: RIVAROXABAN
     Indication: CEREBROVASCULAR ACCIDENT PROPHYLAXIS
     Route: 048
     Dates: start: 20140425, end: 201408
  4. ACTONEL PLUS [Concomitant]
     Indication: OSTEOPOROSIS
     Route: 065
  5. XARELTO [Suspect]
     Active Substance: RIVAROXABAN
     Indication: ATRIAL FIBRILLATION
     Route: 048
     Dates: start: 20140425, end: 201408

REACTIONS (2)
  - Hypotension [Unknown]
  - Anaemia [Unknown]

NARRATIVE: CASE EVENT DATE: 201404
